FAERS Safety Report 5705171-2 (Version None)
Quarter: 2008Q2

REPORT INFORMATION
  Report Type: 
  Country: None (occurrence: None)
  Receive Date: 20080410
  Receipt Date: 20080331
  Transmission Date: 20081010
  Serious: Yes (Other)
  Sender: FDA-Public Use
  Company Number: 233077J08USA

PATIENT
  Age: 53 Year
  Sex: Female
  Weight: 104.7809 kg

DRUGS (8)
  1. REBIF [Suspect]
     Indication: MULTIPLE SCLEROSIS
     Dosage: 44 MCG, 3 IN 1 WEEKS, SUBCUTANEOUS
     Route: 058
     Dates: start: 20061025, end: 20071101
  2. NIASPAN (NICOTIINIC ACID) [Concomitant]
  3. ZETIA [Concomitant]
  4. WELCHOL [Concomitant]
  5. LOVASA (ALL OTHER THERAPEUTIC PRODUCTS) [Concomitant]
  6. TRICOR [Concomitant]
  7. AZOR (AMLODIPINE) [Concomitant]
  8. CHLORTHALIDONE [Concomitant]

REACTIONS (6)
  - BLOOD CHOLESTEROL INCREASED [None]
  - BLOOD TRIGLYCERIDES INCREASED [None]
  - CONTINUOUS POSITIVE AIRWAY PRESSURE [None]
  - DIABETES MELLITUS [None]
  - HEPATIC STEATOSIS [None]
  - SLEEP APNOEA SYNDROME [None]
